FAERS Safety Report 7219853-7 (Version None)
Quarter: 2011Q1

REPORT INFORMATION
  Report Type: 
  Country: None (occurrence: None)
  Receive Date: 20110111
  Receipt Date: 20101224
  Transmission Date: 20110831
  Serious: Yes (Hospitalization)
  Sender: FDA-Public Use
  Company Number: JP-AMGEN-JPNCT2010003615

PATIENT

DRUGS (11)
  1. IRINOTECAN HYDROCHLORIDE [Suspect]
     Indication: COLORECTAL CANCER
     Dosage: 280 MG, UNK
     Route: 041
     Dates: start: 20100909
  2. PANITUMUMAB [Suspect]
     Dosage: 6 MG/KG, Q2WK
     Route: 041
     Dates: start: 20101004
  3. CORTICOSTEROIDS [Concomitant]
     Indication: PROPHYLAXIS
     Dosage: UNK
     Route: 065
  4. DECADRON PHOSPHATE [Concomitant]
     Dosage: UNK
     Route: 042
  5. PANITUMUMAB [Suspect]
     Indication: COLORECTAL CANCER
     Dosage: 6 MG/KG, Q2WK
     Route: 041
     Dates: start: 20100909, end: 20100909
  6. LOCOID CREAM [Concomitant]
     Dosage: UNK
     Route: 062
  7. OXYCONTIN [Concomitant]
     Dosage: UNK
     Route: 048
  8. OXINORM [Concomitant]
     Dosage: UNK
     Route: 048
  9. EMEND [Concomitant]
     Dosage: UNK
     Route: 048
  10. ALOXI [Concomitant]
     Dosage: UNK
     Route: 042
  11. LOXONIN [Concomitant]
     Dosage: UNK
     Route: 048

REACTIONS (2)
  - CANCER PAIN [None]
  - VOMITING [None]
